FAERS Safety Report 24159145 (Version 4)
Quarter: 2024Q3

REPORT INFORMATION
  Report Type: Other
  Country: US (occurrence: US)
  Receive Date: 20240731
  Receipt Date: 20240930
  Transmission Date: 20241017
  Serious: No
  Sender: TRAVERE THERAPEUTICS
  Company Number: US-TRAVERE-2024TVT00653

PATIENT
  Age: 59 Year
  Sex: Male

DRUGS (3)
  1. FILSPARI [Suspect]
     Active Substance: SPARSENTAN
     Indication: IgA nephropathy
     Route: 048
     Dates: start: 20240622
  2. COREG [Concomitant]
     Active Substance: CARVEDILOL
  3. ASPIRIN [Concomitant]
     Active Substance: ASPIRIN

REACTIONS (2)
  - Fatigue [None]
  - Blood pressure systolic decreased [Unknown]

NARRATIVE: CASE EVENT DATE: 20240622
